FAERS Safety Report 16856965 (Version 1)
Quarter: 2019Q3

REPORT INFORMATION
  Report Type: Spontaneous
  Country: US (occurrence: US)
  Receive Date: 20190926
  Receipt Date: 20190926
  Transmission Date: 20191005
  Serious: No
  Sender: FDA-Public Use
  Company Number: US-FOUNDATIONCONSUMERHC-2019-US-012500

PATIENT
  Age: 32 Year
  Sex: Female
  Weight: 93.44 kg

DRUGS (1)
  1. PLAN B ONE-STEP [Suspect]
     Active Substance: LEVONORGESTREL
     Indication: POST COITAL CONTRACEPTION
     Dosage: 1.5 MG X 4 DOSES
     Route: 048
     Dates: start: 201905, end: 20190628

REACTIONS (3)
  - Mood swings [Recovered/Resolved]
  - Vaginal haemorrhage [Recovered/Resolved]
  - Intentional product misuse [Unknown]

NARRATIVE: CASE EVENT DATE: 201905
